FAERS Safety Report 5654348-3 (Version None)
Quarter: 2008Q1

REPORT INFORMATION
  Report Type: 
  Country: None (occurrence: None)
  Receive Date: 20080131
  Receipt Date: 20071016
  Transmission Date: 20080703
  Serious: No
  Sender: FDA-Public Use
  Company Number: US200710004290

PATIENT
  Age: 51 Year
  Sex: Male
  Weight: 131.1 kg

DRUGS (9)
  1. BYETTA [Suspect]
     Indication: TYPE 2 DIABETES MELLITUS
     Dosage: 5 UG, 2/D, SUBCUTANEOUS ; 10 UG, 2/D, SUBCUTANEOUS
     Route: 058
     Dates: start: 20070901, end: 20070930
  2. BYETTA [Suspect]
     Indication: TYPE 2 DIABETES MELLITUS
     Dosage: 5 UG, 2/D, SUBCUTANEOUS ; 10 UG, 2/D, SUBCUTANEOUS
     Route: 058
     Dates: start: 20071001
  3. METFORMIN HCL [Concomitant]
  4. AMARYL [Concomitant]
  5. FLOMAX [Concomitant]
  6. CYMBALTA [Concomitant]
  7. FLEXERIL [Concomitant]
  8. ZANAFLEX [Concomitant]
  9. LYRICA [Concomitant]

REACTIONS (4)
  - BLOOD GLUCOSE INCREASED [None]
  - DYSPEPSIA [None]
  - MUSCLE SPASMS [None]
  - NAUSEA [None]
